FAERS Safety Report 7565555-7 (Version None)
Quarter: 2011Q2

REPORT INFORMATION
  Report Type: 
  Country: None (occurrence: None)
  Receive Date: 20110615
  Receipt Date: 20110603
  Transmission Date: 20111010
  Serious: Yes (Life-Threatening)
  Sender: FDA-Public Use
  Company Number: 2011PV000025

PATIENT
  Age: 27 Year
  Sex: Male

DRUGS (4)
  1. ETOPOSIDE [Concomitant]
  2. METHOTREXATE [Concomitant]
  3. DEPOCYT [Suspect]
     Indication: PROPHYLAXIS
     Dosage: 50 MG, X2; IT
     Route: 038
     Dates: start: 20110121, end: 20110325
  4. MERCAPTOPURINE [Concomitant]

REACTIONS (3)
  - PANCYTOPENIA [None]
  - VOMITING [None]
  - SUBDURAL HAEMATOMA [None]
